FAERS Safety Report 14345651 (Version 1)
Quarter: 2017Q4

REPORT INFORMATION
  Report Type: Spontaneous
  Country: US (occurrence: US)
  Receive Date: 20171230
  Receipt Date: 20171230
  Transmission Date: 20180321
  Serious: Yes (Other)
  Sender: FDA-Public Use
  Company Number: None

PATIENT
  Age: 77 Year
  Sex: Female

DRUGS (1)
  1. CAPECITABINE. [Suspect]
     Active Substance: CAPECITABINE
     Indication: ILL-DEFINED DISORDER
     Route: 048
     Dates: start: 20171025

REACTIONS (3)
  - Pain [None]
  - Rash macular [None]
  - Dry skin [None]

NARRATIVE: CASE EVENT DATE: 20171025
